FAERS Safety Report 13614197 (Version 1)
Quarter: 2017Q2

REPORT INFORMATION
  Report Type: Spontaneous
  Country: US (occurrence: US)
  Receive Date: 20170606
  Receipt Date: 20170606
  Transmission Date: 20170830
  Serious: No
  Sender: FDA-Public Use
  Company Number: US-ELI_LILLY_AND_COMPANY-US201705003362

PATIENT

DRUGS (6)
  1. REMODULIN [Suspect]
     Active Substance: TREPROSTINIL
     Indication: PULMONARY ARTERIAL HYPERTENSION
     Dosage: UNK UNK, UNKNOWN
     Route: 058
     Dates: start: 201404, end: 2015
  2. MACITENTAN [Suspect]
     Active Substance: MACITENTAN
     Indication: PULMONARY ARTERIAL HYPERTENSION
     Dosage: UNK UNK, UNKNOWN
     Route: 065
     Dates: start: 201603
  3. REMODULIN [Suspect]
     Active Substance: TREPROSTINIL
     Dosage: 105 NG/KG/MIN (0.044 ML/HR)
     Route: 058
     Dates: start: 201601, end: 201612
  4. TADALAFIL [Suspect]
     Active Substance: TADALAFIL
     Indication: PULMONARY ARTERIAL HYPERTENSION
     Dosage: UNK UNK, UNKNOWN
     Route: 065
     Dates: start: 201407
  5. UPTRAVI [Suspect]
     Active Substance: SELEXIPAG
     Indication: PULMONARY ARTERIAL HYPERTENSION
     Dosage: 1600 UG, UNKNOWN
     Route: 065
     Dates: start: 20161021
  6. CARIPUL [Suspect]
     Active Substance: EPOPROSTENOL
     Indication: PULMONARY ARTERIAL HYPERTENSION
     Dosage: UNK UNK, UNKNOWN
     Route: 042
     Dates: start: 2015, end: 201601

REACTIONS (9)
  - Palpitations [Unknown]
  - Dizziness [Unknown]
  - Asthenia [Unknown]
  - Limb discomfort [Unknown]
  - Headache [Unknown]
  - Hypersensitivity [Unknown]
  - Hypertension [Unknown]
  - Injection site pain [Unknown]
  - Decreased activity [Unknown]

NARRATIVE: CASE EVENT DATE: 2015
